FAERS Safety Report 14969988 (Version 1)
Quarter: 2018Q2

REPORT INFORMATION
  Report Type: Spontaneous
  Country: US (occurrence: US)
  Receive Date: 20180604
  Receipt Date: 20180604
  Transmission Date: 20180711
  Serious: No
  Sender: FDA-Public Use
  Company Number: US-TEVA-2018-US-900311

PATIENT
  Sex: Male

DRUGS (2)
  1. SUCRALFATE. [Suspect]
     Active Substance: SUCRALFATE
     Dates: start: 20180527
  2. TOPAMAX [Suspect]
     Active Substance: TOPIRAMATE
     Route: 065

REACTIONS (4)
  - Urticaria [Unknown]
  - Malaise [Unknown]
  - Hypersensitivity [Unknown]
  - Vomiting [Recovered/Resolved]

NARRATIVE: CASE EVENT DATE: 20180527
